FAERS Safety Report 4909816-6 (Version None)
Quarter: 2006Q1

REPORT INFORMATION
  Report Type: 
  Country: None (occurrence: None)
  Receive Date: 20060208
  Receipt Date: 20060124
  Transmission Date: 20060701
  Serious: Yes (Death)
  Sender: FDA-Public Use
  Company Number: 2006-US-00558

PATIENT
  Age: 34 Year
  Sex: Female

DRUGS (2)
  1. MISOPROSTOL [Suspect]
     Indication: ABORTION
     Dosage: 800 MCG, VAGINAL; ONCE
     Route: 067
  2. MIFEPRISTONE [Suspect]
     Indication: ABORTION
     Dosage: 200 MG, ORAL; ONCE
     Route: 048

REACTIONS (19)
  - ABDOMINAL PAIN [None]
  - BACTERIAL INFECTION [None]
  - ENDOMETRIAL DISORDER [None]
  - ESCHERICHIA INFECTION [None]
  - HAEMORRHAGE [None]
  - HYPOTENSION [None]
  - INFLAMMATION [None]
  - METABOLIC ACIDOSIS [None]
  - NAUSEA [None]
  - NECROSIS [None]
  - OEDEMA [None]
  - PERICARDIAL EFFUSION [None]
  - PERITONEAL EFFUSION [None]
  - PLATELET COUNT DECREASED [None]
  - PLEURAL EFFUSION [None]
  - TACHYCARDIA [None]
  - URINE OUTPUT DECREASED [None]
  - VOMITING [None]
  - WHITE BLOOD CELL COUNT INCREASED [None]
